FAERS Safety Report 23686385 (Version 1)
Quarter: 2024Q1

REPORT INFORMATION
  Report Type: Spontaneous
  Country: US (occurrence: US)
  Receive Date: 20240329
  Receipt Date: 20240329
  Transmission Date: 20240410
  Serious: No
  Sender: FDA-Public Use
  Company Number: US-BAYER-2024A046593

PATIENT
  Age: 6 Year
  Sex: Female

DRUGS (1)
  1. MIRALAX [Suspect]
     Active Substance: POLYETHYLENE GLYCOL 3350
     Indication: Gastrointestinal motility disorder
     Dosage: UNK UNK, QD
     Route: 065

REACTIONS (2)
  - Off label use [None]
  - Product prescribing issue [None]
